FAERS Safety Report 6877120-5 (Version None)
Quarter: 2010Q3

REPORT INFORMATION
  Report Type: 
  Country: None (occurrence: None)
  Receive Date: 20100727
  Receipt Date: 20100720
  Transmission Date: 20110219
  Serious: Yes (Death)
  Sender: FDA-Public Use
  Company Number: IT-ROCHE-613946

PATIENT
  Sex: Female
  Weight: 48 kg

DRUGS (5)
  1. BEVACIZUMAB [Suspect]
     Dosage: DOSE: 750 MG, DATE OF LAST DOSE PRIOR TO SAE 28 DEC 2008
     Route: 042
     Dates: start: 20071004, end: 20081229
  2. CAPECITABINE [Suspect]
     Route: 065
     Dates: start: 20081031, end: 20081229
  3. CAPECITABINE [Suspect]
     Route: 065
     Dates: end: 20090115
  4. CYTOXAN [Suspect]
     Dosage: DRUG REPORTED AS : CITOXAN
     Route: 065
     Dates: start: 20081031, end: 20081229
  5. CYTOXAN [Suspect]
     Route: 065
     Dates: end: 20090115

REACTIONS (1)
  - CONGESTIVE CARDIOMYOPATHY [None]
